FAERS Safety Report 21371614 (Version 1)
Quarter: 2022Q3

REPORT INFORMATION
  Report Type: Spontaneous
  Country: US (occurrence: US)
  Receive Date: 20220923
  Receipt Date: 20220923
  Transmission Date: 20221027
  Serious: No
  Sender: FDA-Public Use
  Company Number: US-ORGANON-O2209USA001188

PATIENT
  Age: 20 Year
  Sex: Female
  Weight: 56.689 kg

DRUGS (2)
  1. NEXPLANON [Suspect]
     Active Substance: ETONOGESTREL
     Indication: Contraception
     Dosage: 1 IMPLANT IN LEFT ARM, EVERY 5 YEARS
     Route: 059
     Dates: start: 20191011
  2. PLAN B [Concomitant]
     Active Substance: LEVONORGESTREL
     Dosage: UNK

REACTIONS (3)
  - Amenorrhoea [Recovered/Resolved]
  - Vaginal haemorrhage [Not Recovered/Not Resolved]
  - Product prescribing issue [Unknown]

NARRATIVE: CASE EVENT DATE: 20191101
